FAERS Safety Report 24662535 (Version 2)
Quarter: 2025Q1

REPORT INFORMATION
  Report Type: Spontaneous
  Country: US (occurrence: US)
  Receive Date: 20241126
  Receipt Date: 20250213
  Transmission Date: 20250409
  Serious: Yes (Hospitalization, Other)
  Sender: NOVO NORDISK
  Company Number: US-NOVOPROD-1315038

PATIENT
  Age: 84 Year
  Sex: Female

DRUGS (2)
  1. OZEMPIC [Suspect]
     Active Substance: SEMAGLUTIDE
     Indication: Type 2 diabetes mellitus
     Dosage: 1 MG, QW
     Route: 058
     Dates: start: 2019
  2. OZEMPIC [Suspect]
     Active Substance: SEMAGLUTIDE
     Dosage: 1 MG, QW
     Route: 058

REACTIONS (7)
  - Cataract operation [Recovered/Resolved]
  - Macular degeneration [Not Recovered/Not Resolved]
  - Kidney infection [Recovered/Resolved]
  - Lithotripsy [Not Recovered/Not Resolved]
  - Pancreatic disorder [Recovered/Resolved]
  - Urinary tract infection [Not Recovered/Not Resolved]
  - Cholelithiasis [Recovered/Resolved]

NARRATIVE: CASE EVENT DATE: 20200101
